FAERS Safety Report 23889745 (Version 1)
Quarter: 2024Q2

REPORT INFORMATION
  Report Type: Spontaneous
  Country: NL (occurrence: NL)
  Receive Date: 20240523
  Receipt Date: 20240523
  Transmission Date: 20240716
  Serious: Yes (Other)
  Sender: FDA-Public Use
  Company Number: None

PATIENT
  Age: 22 Year
  Sex: Male
  Weight: 96 kg

DRUGS (4)
  1. FLUVOXAMINE [Suspect]
     Active Substance: FLUVOXAMINE
     Indication: Psychotic disorder
     Dosage: 50 MILLIGRAM (0 AFTER 30 YEARS OF USE (LAST 50 MG))
     Route: 065
     Dates: start: 19920101
  2. FLUVOXAMINE [Suspect]
     Active Substance: FLUVOXAMINE
     Indication: Anxiety
  3. FLUVOXAMINE [Suspect]
     Active Substance: FLUVOXAMINE
     Indication: Obsessive-compulsive disorder
  4. VORTIOXETINE [Suspect]
     Active Substance: VORTIOXETINE
     Indication: Therapy change
     Dosage: 5 MILLIGRAM, ONCE DAILY
     Route: 065
     Dates: start: 20240422

REACTIONS (2)
  - Hallucination [Not Recovered/Not Resolved]
  - Drug withdrawal syndrome [Not Recovered/Not Resolved]
